FAERS Safety Report 8556053-2 (Version None)
Quarter: 2012Q3

REPORT INFORMATION
  Report Type: 
  Country: None (occurrence: None)
  Receive Date: 20120801
  Receipt Date: 20110124
  Transmission Date: 20120928
  Serious: Yes (Hospitalization)
  Sender: FDA-Public Use
  Company Number: US-BAYER-201033649NA

PATIENT
  Age: 39 Year
  Sex: Female
  Weight: 81 kg

DRUGS (12)
  1. YASMIN [Suspect]
     Dosage: UNK
     Dates: start: 20020321, end: 20020526
  2. MULTI-VITAMIN [Concomitant]
  3. TYLENOL (CAPLET) [Concomitant]
     Indication: PAIN
  4. ORTHO-NOVUM 1/35 [Concomitant]
     Dosage: UNK
     Dates: start: 20070201
  5. YAZ [Suspect]
     Indication: ORAL CONTRACEPTION
     Route: 048
     Dates: start: 20060701, end: 20070501
  6. PHENAZOPYRIDINE HCL TAB [Concomitant]
  7. VICODIN [Concomitant]
  8. SYNTHROID [Concomitant]
     Indication: THYROID DISORDER
     Dates: start: 20060901
  9. HYDROCODONE BITARTRATE AND ACETAMINOPHEN [Concomitant]
  10. YASMIN [Suspect]
     Indication: ORAL CONTRACEPTION
     Route: 048
     Dates: start: 20060701, end: 20070501
  11. MERIDIA [Concomitant]
     Dates: start: 20070101, end: 20070915
  12. IBUPROFEN [Concomitant]
     Indication: PAIN

REACTIONS (6)
  - ABDOMINAL PAIN [None]
  - CHOLELITHIASIS [None]
  - CHOLECYSTITIS CHRONIC [None]
  - CHOLESTEROSIS [None]
  - ABDOMINAL PAIN UPPER [None]
  - PROCEDURAL PAIN [None]
